FAERS Safety Report 8359414-X (Version None)
Quarter: 2012Q2

REPORT INFORMATION
  Report Type: 
  Country: None (occurrence: None)
  Receive Date: 20120515
  Receipt Date: 20120511
  Transmission Date: 20120825
  Serious: No
  Sender: FDA-Public Use
  Company Number: US-PFIZER INC-2012115810

PATIENT
  Sex: Female
  Weight: 74.83 kg

DRUGS (9)
  1. AMLODIPINE [Concomitant]
     Indication: ARRHYTHMIA
  2. METOPROLOL [Concomitant]
     Indication: ARRHYTHMIA
  3. ARTHROTEC [Concomitant]
     Indication: ARTHRITIS
     Dosage: 75 MG / 200 MCG, DAILY
  4. VITAMIN D [Concomitant]
     Indication: SUPPLEMENTATION THERAPY
     Dosage: DAILY
  5. LIPITOR [Suspect]
     Indication: BLOOD CHOLESTEROL INCREASED
     Dosage: 20 MG, DAILY
     Dates: start: 20111201
  6. AMLODIPINE [Concomitant]
     Indication: HYPERTENSION
     Dosage: 5 MG, HALF TABLET, DAILY
  7. AGGRENOX [Concomitant]
     Indication: ANTICOAGULANT THERAPY
     Dosage: 25 MG / 200 MG, 2X/DAY
  8. COENZYME Q10 [Suspect]
     Indication: PAIN
     Dosage: 100 MG, DAILY
     Dates: start: 20120101
  9. METOPROLOL [Concomitant]
     Indication: HYPERTENSION
     Dosage: HALF 25 MG TABLET DAILY

REACTIONS (2)
  - ARTHRALGIA [None]
  - MYALGIA [None]
